FAERS Safety Report 15731666 (Version 2)
Quarter: 2019Q1

REPORT INFORMATION
  Report Type: Report from Study
  Country: PH (occurrence: PH)
  Receive Date: 20181217
  Receipt Date: 20190110
  Transmission Date: 20190417
  Serious: Yes (Death)
  Sender: FDA-Public Use
  Company Number: PHHY2018PH188372

PATIENT
  Age: 17 Year
  Sex: Female

DRUGS (1)
  1. GLIVEC [Suspect]
     Active Substance: IMATINIB MESYLATE
     Indication: CHRONIC MYELOID LEUKAEMIA
     Dosage: 400 MG, UNK
     Route: 048
     Dates: start: 20170914

REACTIONS (4)
  - Leukocytosis [Unknown]
  - Death [Fatal]
  - Gastroenteritis [Unknown]
  - Anaemia [Unknown]

NARRATIVE: CASE EVENT DATE: 201802
